FAERS Safety Report 25220579 (Version 1)
Quarter: 2025Q2

REPORT INFORMATION
  Report Type: Spontaneous
  Country: FR (occurrence: FR)
  Receive Date: 20250421
  Receipt Date: 20250421
  Transmission Date: 20250717
  Serious: Yes (Hospitalization)
  Sender: TEVA
  Company Number: None

PATIENT
  Age: 13 Year
  Sex: Female
  Weight: 46.8 kg

DRUGS (6)
  1. ACETAMINOPHEN [Suspect]
     Active Substance: ACETAMINOPHEN
     Indication: Poisoning deliberate
     Route: 048
     Dates: start: 20241111, end: 20241111
  2. ACETYLCYSTEINE [Suspect]
     Active Substance: ACETYLCYSTEINE
     Indication: Product used for unknown indication
     Route: 048
     Dates: start: 20241112, end: 20241113
  3. TRAMADOL [Suspect]
     Active Substance: TRAMADOL
     Indication: Poisoning deliberate
     Route: 048
     Dates: start: 20241111, end: 20241111
  4. HYDROXYZINE HYDROCHLORIDE [Concomitant]
     Active Substance: HYDROXYZINE HYDROCHLORIDE
     Indication: Product used for unknown indication
     Route: 065
  5. KETOPROFEN [Suspect]
     Active Substance: KETOPROFEN
     Indication: Poisoning deliberate
     Route: 048
     Dates: start: 20241111, end: 20241111
  6. ACTIVATED CHARCOAL [Suspect]
     Active Substance: ACTIVATED CHARCOAL
     Indication: Product used for unknown indication
     Route: 048
     Dates: start: 20241111, end: 20241111

REACTIONS (2)
  - Vomiting [Recovered/Resolved]
  - Poisoning deliberate [Recovered/Resolved]

NARRATIVE: CASE EVENT DATE: 20241111
